FAERS Safety Report 5627037-9 (Version None)
Quarter: 2008Q1

REPORT INFORMATION
  Report Type: 
  Country: None (occurrence: None)
  Receive Date: 20080117
  Receipt Date: 20070316
  Transmission Date: 20080703
  Serious: Yes (Hospitalization)
  Sender: FDA-Public Use
  Company Number: E2020-01095-SPO-US

PATIENT
  Sex: Female

DRUGS (4)
  1. ARICEPT [Suspect]
     Indication: DEMENTIA
     Dosage: 5 MG, 1 IN 1 D, ORAL
     Route: 048
     Dates: start: 20050711, end: 20050701
  2. SEROQUEL [Concomitant]
  3. NAMENDA [Concomitant]
  4. RIMERON (MIRTAZAPINE) [Concomitant]

REACTIONS (1)
  - PNEUMONIA [None]
